FAERS Safety Report 17125903 (Version 1)
Quarter: 2019Q4

REPORT INFORMATION
  Report Type: Spontaneous
  Country: US (occurrence: US)
  Receive Date: 20191208
  Receipt Date: 20191208
  Transmission Date: 20200122
  Serious: No
  Sender: FDA-Public Use
  Company Number: US-PRINSTON PHARMACEUTICAL INC.-2019PRN00458

PATIENT
  Sex: Female
  Weight: 68.03 kg

DRUGS (4)
  1. PAROXETINE. [Suspect]
     Active Substance: PAROXETINE
     Indication: DEPRESSION
     Dosage: 10 MG, 1X/DAY
     Route: 048
     Dates: end: 201805
  2. UNSPECIFIED SLEEP MEDICATION [Suspect]
     Active Substance: UNSPECIFIED INGREDIENT
     Indication: MIDDLE INSOMNIA
     Dosage: UNK
     Dates: end: 201805
  3. COD LIVER OIL [Concomitant]
     Active Substance: COD LIVER OIL
  4. LEVOTHYROXINE. [Concomitant]
     Active Substance: LEVOTHYROXINE
     Dosage: 100 ?G, 1X/DAY

REACTIONS (5)
  - Circadian rhythm sleep disorder [Recovered/Resolved]
  - Weight decreased [Recovered/Resolved]
  - Hunger [Recovered/Resolved]
  - Nausea [Recovered/Resolved]
  - Feeling abnormal [Recovered/Resolved]
